FAERS Safety Report 5152344-6 (Version None)
Quarter: 2006Q4

REPORT INFORMATION
  Report Type: 
  Country: None (occurrence: None)
  Receive Date: 20061116
  Receipt Date: 20061110
  Transmission Date: 20070319
  Serious: Yes (Hospitalization)
  Sender: FDA-Public Use
  Company Number: US-SANOFI-SYNTHELABO-A03200606817

PATIENT
  Sex: Female

DRUGS (6)
  1. VITAMIN B COMPLEX CAP [Concomitant]
     Route: 048
  2. LORAZEPAM [Concomitant]
     Route: 048
  3. FLUVASTATIN [Concomitant]
     Route: 048
  4. METOPROLOL TARTRATE [Concomitant]
     Route: 048
  5. LISINOPRIL [Concomitant]
     Route: 048
  6. PLAVIX [Suspect]
     Indication: ANTICOAGULANT THERAPY
     Route: 048
     Dates: start: 20060202

REACTIONS (3)
  - ATRIAL FLUTTER [None]
  - BLOOD PRESSURE SYSTOLIC INCREASED [None]
  - PALPITATIONS [None]
